FAERS Safety Report 6873045-X (Version None)
Quarter: 2010Q3

REPORT INFORMATION
  Report Type: 
  Country: None (occurrence: None)
  Receive Date: 20100723
  Receipt Date: 20081112
  Transmission Date: 20110219
  Serious: No
  Sender: FDA-Public Use
  Company Number: US-PFIZER INC-2008098288

PATIENT
  Sex: Male
  Weight: 75 kg

DRUGS (1)
  1. CHANTIX [Suspect]
     Indication: SMOKING CESSATION THERAPY
     Dates: start: 20081001, end: 20081107

REACTIONS (2)
  - INSOMNIA [None]
  - NAUSEA [None]
